FAERS Safety Report 23132316 (Version 1)
Quarter: 2023Q4

REPORT INFORMATION
  Report Type: Spontaneous
  Country: US (occurrence: US)
  Receive Date: 20231101
  Receipt Date: 20231101
  Transmission Date: 20240109
  Serious: No
  Sender: FDA-Public Use
  Company Number: US-BRISTOL-MYERS SQUIBB COMPANY-2023-155040

PATIENT
  Age: 73 Year
  Sex: Male

DRUGS (1)
  1. REVLIMID [Suspect]
     Active Substance: LENALIDOMIDE
     Indication: Plasma cell myeloma
     Route: 048
     Dates: start: 202308

REACTIONS (6)
  - Gastrointestinal disorder [Unknown]
  - Fatigue [Unknown]
  - Weight decreased [Unknown]
  - Chills [Unknown]
  - Full blood count decreased [Unknown]
  - Drug intolerance [Unknown]
